FAERS Safety Report 12268647 (Version 1)
Quarter: 2016Q2

REPORT INFORMATION
  Report Type: Report from Study
  Country: AU (occurrence: AU)
  Receive Date: 20160414
  Receipt Date: 20160414
  Transmission Date: 20160815
  Serious: Yes (Other)
  Sender: FDA-Public Use
  Company Number: AU-ABBVIE-15P-008-1506166-00

PATIENT
  Age: 53 Year
  Sex: Male

DRUGS (3)
  1. DILANTIN [Concomitant]
     Active Substance: PHENYTOIN
     Indication: EPILEPSY
  2. VIEKIRA PAK [Suspect]
     Active Substance: DASABUVIR\OMBITASVIR\PARITAPREVIR\RITONAVIR
     Indication: HEPATITIS C
     Dosage: TWO 12.5/75/50MG IN THE AM: DASABUVIR 250MG TWICE A DAY
     Route: 048
     Dates: start: 20151111, end: 20160202
  3. RIBAVIRIN. [Suspect]
     Active Substance: RIBAVIRIN
     Indication: HEPATITIS C
     Dosage: 2 IN AM/3 AT PM
     Route: 048

REACTIONS (12)
  - Pruritus [Recovered/Resolved]
  - Fatigue [Not Recovered/Not Resolved]
  - Rash [Recovered/Resolved]
  - Rash macular [Recovering/Resolving]
  - Somnolence [Recovering/Resolving]
  - Cerebral disorder [Not Recovered/Not Resolved]
  - Adverse drug reaction [Recovering/Resolving]
  - Feeling abnormal [Not Recovered/Not Resolved]
  - Feeling abnormal [Unknown]
  - Suicidal ideation [Recovering/Resolving]
  - Genital herpes [Not Recovered/Not Resolved]
  - Disturbance in attention [Unknown]

NARRATIVE: CASE EVENT DATE: 201511
